FAERS Safety Report 17023652 (Version 2)
Quarter: 2020Q1

REPORT INFORMATION
  Report Type: Report from Study
  Country: US (occurrence: US)
  Receive Date: 20191113
  Receipt Date: 20200117
  Transmission Date: 20200409
  Serious: No
  Sender: FDA-Public Use
  Company Number: NVSC2019US033491

PATIENT
  Age: 51 Year
  Sex: Female

DRUGS (1)
  1. COSENTYX [Suspect]
     Active Substance: SECUKINUMAB
     Indication: PSORIATIC ARTHROPATHY
     Dosage: 300 MG, QMO (Q4W) (BATCH NUMBER WAS NOT REPORTED)
     Route: 058
     Dates: start: 20190320

REACTIONS (3)
  - Pain [Unknown]
  - Rash [Not Recovered/Not Resolved]
  - Skin plaque [Not Recovered/Not Resolved]
